FAERS Safety Report 9796287 (Version 1)
Quarter: 2014Q1

REPORT INFORMATION
  Report Type: Spontaneous
  Country: US (occurrence: US)
  Receive Date: 20140103
  Receipt Date: 20140103
  Transmission Date: 20141002
  Serious: No
  Sender: FDA-Public Use
  Company Number: US-PFIZER INC-2014000007

PATIENT
  Age: 57 Year
  Sex: Female
  Weight: 70.3 kg

DRUGS (4)
  1. XELJANZ [Suspect]
     Indication: RHEUMATOID ARTHRITIS
     Dosage: 5 MG, 2X/DAY
     Route: 048
     Dates: start: 20131107
  2. LUPRON [Suspect]
     Dosage: UNK
  3. HYDROXYCHLOROQUINE [Concomitant]
     Dosage: 200 MG, 2X/DAY
  4. PREDNISONE [Concomitant]
     Dosage: 5 MG, 1X/DAY (AT 5 PM)

REACTIONS (1)
  - Drug ineffective [Unknown]
